FAERS Safety Report 5051724-7 (Version None)
Quarter: 2006Q3

REPORT INFORMATION
  Report Type: 
  Country: None (occurrence: None)
  Receive Date: 20060714
  Receipt Date: 20060714
  Transmission Date: 20061208
  Serious: Yes (Other)
  Sender: FDA-Public Use
  Company Number: None

PATIENT
  Age: 60 Year
  Sex: Male

DRUGS (1)
  1. CEFEPIME [Suspect]
     Indication: BONE DISORDER
     Dosage: 2 G IV Q8 H
     Route: 042
     Dates: start: 20060701, end: 20060711

REACTIONS (1)
  - RASH [None]
